FAERS Safety Report 10587336 (Version 1)
Quarter: 2014Q4

REPORT INFORMATION
  Report Type: Report from Study
  Country: IQ (occurrence: IQ)
  Receive Date: 20141117
  Receipt Date: 20141117
  Transmission Date: 20150529
  Serious: Yes (Other)
  Sender: FDA-Public Use
  Company Number: PHHY2014IQ148503

PATIENT
  Age: 44 Year
  Sex: Female
  Weight: 97 kg

DRUGS (1)
  1. SOM230 [Suspect]
     Active Substance: PASIREOTIDE
     Indication: PITUITARY-DEPENDENT CUSHING^S SYNDROME
     Dosage: 600 MG, BID
     Route: 058
     Dates: start: 20140823, end: 20141012

REACTIONS (3)
  - Weight decreased [Unknown]
  - Hyperglycaemia [Recovered/Resolved]
  - Cortisol free urine decreased [Recovering/Resolving]

NARRATIVE: CASE EVENT DATE: 20140901
